FAERS Safety Report 7455098-3 (Version None)
Quarter: 2011Q2

REPORT INFORMATION
  Report Type: 
  Country: None (occurrence: None)
  Receive Date: 20110503
  Receipt Date: 20110328
  Transmission Date: 20111010
  Serious: Yes (Other)
  Sender: FDA-Public Use
  Company Number: US-BAYER-2010-002450

PATIENT
  Age: 35 Year
  Sex: Female
  Weight: 83.9 kg

DRUGS (5)
  1. LORTAB [Concomitant]
  2. YAZ [Suspect]
     Indication: CONTRACEPTION
     Dosage: UNK
     Dates: start: 20080701, end: 20090301
  3. YAZ [Suspect]
     Indication: PREMENSTRUAL SYNDROME
  4. LEVAQUIN [Concomitant]
     Dosage: 500 MG, UNK
  5. PHENERGAN AND CHLORAL HYDRATE [Concomitant]

REACTIONS (4)
  - CHOLECYSTITIS [None]
  - GALLBLADDER DISORDER [None]
  - CHOLELITHIASIS [None]
  - BILE DUCT STONE [None]
